FAERS Safety Report 8587558-6 (Version None)
Quarter: 2012Q3

REPORT INFORMATION
  Report Type: 
  Country: None (occurrence: None)
  Receive Date: 20120810
  Receipt Date: 20120806
  Transmission Date: 20120928
  Serious: Yes (Hospitalization)
  Sender: FDA-Public Use
  Company Number: JP-009507513-1208JPN000049

PATIENT

DRUGS (1)
  1. ELAVIL [Suspect]
     Indication: DEPRESSION
     Dosage: 100 MG, UNK
     Route: 048

REACTIONS (2)
  - CONVULSION [None]
  - STATUS EPILEPTICUS [None]
